FAERS Safety Report 22089476 (Version 1)
Quarter: 2023Q1

REPORT INFORMATION
  Report Type: Spontaneous
  Country: US (occurrence: None)
  Receive Date: 20230312
  Receipt Date: 20230312
  Transmission Date: 20230418
  Serious: Yes (Disabling)
  Sender: FDA-Public Use
  Company Number: None

PATIENT
  Age: 54 Year
  Sex: Female

DRUGS (4)
  1. GABAPENTIN [Suspect]
     Active Substance: GABAPENTIN
     Indication: Neuropathy peripheral
  2. NORVASC [Concomitant]
     Active Substance: AMLODIPINE BESYLATE
  3. Carvedilol 50 mg [Concomitant]
  4. VITAMINS [Concomitant]
     Active Substance: VITAMINS

REACTIONS (3)
  - Visual snow syndrome [None]
  - Therapy interrupted [None]
  - Visual impairment [None]

NARRATIVE: CASE EVENT DATE: 20211115
